FAERS Safety Report 6663270-5 (Version None)
Quarter: 2010Q2

REPORT INFORMATION
  Report Type: 
  Country: None (occurrence: None)
  Receive Date: 20100401
  Receipt Date: 20100326
  Transmission Date: 20101027
  Serious: Yes (Other)
  Sender: FDA-Public Use
  Company Number: US-SANOFI-AVENTIS-2010SA018015

PATIENT
  Age: 65 Year
  Sex: Male

DRUGS (3)
  1. MULTAQ [Suspect]
     Indication: ATRIAL FIBRILLATION
     Route: 048
     Dates: start: 20100220
  2. COREG [Concomitant]
  3. LIPITOR [Concomitant]

REACTIONS (3)
  - CARDIAC FAILURE [None]
  - DYSPNOEA [None]
  - FATIGUE [None]
